FAERS Safety Report 25593778 (Version 2)
Quarter: 2025Q3

REPORT INFORMATION
  Report Type: Spontaneous
  Country: JP (occurrence: JP)
  Receive Date: 20250723
  Receipt Date: 20250728
  Transmission Date: 20251021
  Serious: Yes (Hospitalization, Other)
  Sender: ALEXION PHARMACEUTICALS
  Company Number: JP-ASTRAZENECA-202507JPN013534JP

PATIENT
  Age: 66 Year
  Sex: Female

DRUGS (5)
  1. FASLODEX [Suspect]
     Active Substance: FULVESTRANT
     Indication: Breast cancer female
  2. FASLODEX [Suspect]
     Active Substance: FULVESTRANT
  3. ARIMIDEX [Suspect]
     Active Substance: ANASTROZOLE
     Indication: Breast cancer female
     Route: 065
  4. TAMOXIFEN [Suspect]
     Active Substance: TAMOXIFEN
     Indication: Breast cancer female
     Route: 065
  5. PALBOCICLIB [Suspect]
     Active Substance: PALBOCICLIB
     Indication: Breast cancer female

REACTIONS (7)
  - Myelosuppression [Unknown]
  - Urinary tract infection [Unknown]
  - Pneumonia aspiration [Unknown]
  - COVID-19 [Unknown]
  - Dysphagia [Unknown]
  - Infection [Unknown]
  - General physical health deterioration [Unknown]
